FAERS Safety Report 25682779 (Version 1)
Quarter: 2025Q3

REPORT INFORMATION
  Report Type: Report from Study
  Country: US (occurrence: US)
  Receive Date: 20250814
  Receipt Date: 20250814
  Transmission Date: 20251021
  Serious: Yes (Other)
  Sender: ABBVIE
  Company Number: US-ABBVIE-6414927

PATIENT
  Sex: Male

DRUGS (1)
  1. SKYRIZI [Suspect]
     Active Substance: RISANKIZUMAB-RZAA
     Indication: Crohn^s disease
     Route: 042
     Dates: start: 20250613, end: 20250708

REACTIONS (3)
  - Intestinal obstruction [Not Recovered/Not Resolved]
  - Abdominal pain [Unknown]
  - Abscess [Not Recovered/Not Resolved]

NARRATIVE: CASE EVENT DATE: 20250101
